FAERS Safety Report 11069462 (Version 2)
Quarter: 2015Q3

REPORT INFORMATION
  Report Type: Report from Study
  Country: CA (occurrence: CA)
  Receive Date: 20150427
  Receipt Date: 20150722
  Transmission Date: 20151125
  Serious: Yes (Other)
  Sender: FDA-Public Use
  Company Number: CA-JNJFOC-20150217654

PATIENT
  Sex: Female
  Weight: 67 kg

DRUGS (11)
  1. IRON [Concomitant]
     Active Substance: IRON
     Route: 048
  2. CETIRIZINE [Concomitant]
     Active Substance: CETIRIZINE HYDROCHLORIDE
     Route: 065
  3. RISEDRONATE [Concomitant]
     Active Substance: RISEDRONATE SODIUM
     Route: 065
  4. PREDNISONE. [Concomitant]
     Active Substance: PREDNISONE
     Dosage: HOLDING AT 10 MG UNTIL RHEUMATOLOGY FOLLOW UP
     Route: 065
  5. ASACOL [Concomitant]
     Active Substance: MESALAMINE
     Route: 065
  6. PREDNISONE. [Concomitant]
     Active Substance: PREDNISONE
     Dosage: DECREASING NEXT WEEK
     Route: 065
  7. PLAQUENIL [Concomitant]
     Active Substance: HYDROXYCHLOROQUINE SULFATE
     Route: 065
  8. HYDROMORPHONE [Concomitant]
     Active Substance: HYDROMORPHONE
     Route: 065
  9. REMICADE [Suspect]
     Active Substance: INFLIXIMAB
     Indication: COLITIS ULCERATIVE
     Route: 042
     Dates: start: 200911
  10. CALCIUM [Concomitant]
     Active Substance: CALCIUM
     Route: 048
  11. PREDNISONE. [Concomitant]
     Active Substance: PREDNISONE
     Dosage: DECREASING BY 10 MG WEEKLY
     Route: 065

REACTIONS (2)
  - Systemic lupus erythematosus [Unknown]
  - Stress [Unknown]

NARRATIVE: CASE EVENT DATE: 2014
